FAERS Safety Report 8116592-5 (Version None)
Quarter: 2012Q1

REPORT INFORMATION
  Report Type: 
  Country: None (occurrence: None)
  Receive Date: 20120206
  Receipt Date: 20120201
  Transmission Date: 20120608
  Serious: Yes (Life-Threatening, Hospitalization, Other)
  Sender: FDA-Public Use
  Company Number: FR-PFIZER INC-2004105784

PATIENT
  Age: 55 Year
  Sex: Female

DRUGS (8)
  1. ZYRTEC [Suspect]
     Indication: PRURITUS
     Dosage: 10 MG, 1X/DAY
     Route: 048
  2. ZYRTEC [Suspect]
     Dosage: 10 MG, 2X/DAY
     Route: 048
  3. ZOCOR [Suspect]
     Dosage: 20 MG, 1X/DAY
     Route: 048
  4. STABLON [Suspect]
     Dosage: 12.5 MG, 2X/DAY
     Route: 048
  5. ATARAX [Suspect]
     Dosage: 25 MG, 2X/DAY
     Route: 048
  6. ZYRTEC [Suspect]
     Dosage: 10 MG, 3X/DAY
     Route: 048
     Dates: start: 20031023, end: 20031105
  7. XANAX [Suspect]
     Dosage: 0.5 MG, UNK
     Route: 048
  8. MEDIATOR [Suspect]
     Dosage: 150 MG, 2X/DAY
     Route: 048

REACTIONS (8)
  - VENTRICULAR FLUTTER [None]
  - OVERDOSE [None]
  - VENTRICULAR ARRHYTHMIA [None]
  - LOSS OF CONSCIOUSNESS [None]
  - HYPOKALAEMIA [None]
  - CARDIAC ARREST [None]
  - TORSADE DE POINTES [None]
  - ELECTROCARDIOGRAM QT PROLONGED [None]
